FAERS Safety Report 19630489 (Version 2)
Quarter: 2021Q3

REPORT INFORMATION
  Report Type: Spontaneous
  Country: LT (occurrence: LT)
  Receive Date: 20210729
  Receipt Date: 20210803
  Transmission Date: 20211014
  Serious: Yes (Hospitalization, Other)
  Sender: FDA-Public Use
  Company Number: LT-GLAXOSMITHKLINE-LTCH2021048486

PATIENT
  Age: 42 Year
  Sex: Female
  Weight: 80 kg

DRUGS (5)
  1. ASPIRIN. [Suspect]
     Active Substance: ASPIRIN
     Indication: PRODUCT USED FOR UNKNOWN INDICATION
     Dosage: UNK
     Route: 048
     Dates: start: 20210707, end: 20210707
  2. IBUPROFEN. [Suspect]
     Active Substance: IBUPROFEN
     Indication: PRODUCT USED FOR UNKNOWN INDICATION
     Dosage: UNK
     Route: 048
     Dates: start: 20210707, end: 20210707
  3. DICLOFENAC [Suspect]
     Active Substance: DICLOFENAC
     Indication: PRODUCT USED FOR UNKNOWN INDICATION
     Dosage: UNK
     Route: 048
     Dates: start: 20210707, end: 20210707
  4. LITHIUM. [Suspect]
     Active Substance: LITHIUM
     Indication: BIPOLAR DISORDER
     Dosage: 450 MG
     Route: 048
     Dates: start: 20210707, end: 20210707
  5. VALIDOL (HYDROXYZINE HYDROCHLORIDE) [Suspect]
     Active Substance: HYDROXYZINE HYDROCHLORIDE
     Indication: PRODUCT USED FOR UNKNOWN INDICATION
     Dosage: UNK
     Route: 048
     Dates: start: 20210707, end: 20210707

REACTIONS (3)
  - Intentional overdose [Recovered/Resolved]
  - Suicide attempt [Recovered/Resolved]
  - Depression [Recovering/Resolving]

NARRATIVE: CASE EVENT DATE: 20210707
